FAERS Safety Report 12974574 (Version 4)
Quarter: 2017Q1

REPORT INFORMATION
  Report Type: Spontaneous
  Country: JP (occurrence: JP)
  Receive Date: 20161125
  Receipt Date: 20170216
  Transmission Date: 20170428
  Serious: Yes (Death, Life-Threatening, Hospitalization, Other)
  Sender: FDA-Public Use
  Company Number: JP-BRISTOL-MYERS SQUIBB COMPANY-BMS-2016-099836

PATIENT
  Age: 75 Year
  Sex: Male

DRUGS (2)
  1. OPDIVO [Suspect]
     Active Substance: NIVOLUMAB
     Indication: NON-SMALL CELL LUNG CANCER RECURRENT
     Dosage: 3 MG/KG,(180 MG)
     Route: 041
     Dates: start: 20160628, end: 20161101
  2. WARFARIN POTASSIUM [Suspect]
     Active Substance: WARFARIN POTASSIUM
     Indication: ATRIAL FIBRILLATION
     Dosage: 2 MG, UNK
     Route: 048
     Dates: start: 2005, end: 20161109

REACTIONS (5)
  - Deep vein thrombosis [Fatal]
  - Pseudomembranous colitis [Fatal]
  - Cerebral infarction [Fatal]
  - Disseminated intravascular coagulation [Fatal]
  - Pyelonephritis acute [Fatal]

NARRATIVE: CASE EVENT DATE: 201611
